FAERS Safety Report 16257185 (Version 1)
Quarter: 2019Q2

REPORT INFORMATION
  Report Type: Spontaneous
  Country: SE (occurrence: SE)
  Receive Date: 20190430
  Receipt Date: 20190430
  Transmission Date: 20190711
  Serious: Yes (Hospitalization)
  Sender: FDA-Public Use
  Company Number: SE-PFIZER INC-2019182710

PATIENT
  Age: 40 Year
  Sex: Female

DRUGS (3)
  1. XANOR [Suspect]
     Active Substance: ALPRAZOLAM
     Dosage: UNK (LITTLE XANOR)
     Dates: start: 20170710, end: 20170710
  2. DIMOR [Suspect]
     Active Substance: LOPERAMIDE
     Dosage: 60 MG, SINGLE
     Route: 048
     Dates: start: 20170710, end: 20170710
  3. BACLOFEN. [Suspect]
     Active Substance: BACLOFEN
     Dosage: UNK (SINGLE BACLOFEN)
     Dates: start: 20170710, end: 20170710

REACTIONS (5)
  - Fatigue [Unknown]
  - Restless legs syndrome [Unknown]
  - Intentional self-injury [Unknown]
  - Tachycardia [Unknown]
  - Intentional overdose [Unknown]

NARRATIVE: CASE EVENT DATE: 201707
